FAERS Safety Report 12997362 (Version 2)
Quarter: 2016Q4

REPORT INFORMATION
  Report Type: Spontaneous
  Country: DE (occurrence: DE)
  Receive Date: 20161205
  Receipt Date: 20161220
  Transmission Date: 20170207
  Serious: Yes (Life-Threatening, Hospitalization)
  Sender: FDA-Public Use
  Company Number: DE-ROCHE-1863233

PATIENT
  Age: 77 Year
  Sex: Female
  Weight: 49 kg

DRUGS (6)
  1. 5-FLUOROURACIL [Suspect]
     Active Substance: FLUOROURACIL
     Indication: COLON CANCER
     Dosage: IN TOTAL 11 CYCLES
     Route: 040
     Dates: start: 20160422, end: 20161102
  2. AVASTIN [Suspect]
     Active Substance: BEVACIZUMAB
     Indication: COLON CANCER
     Dosage: IN TOTAL 11 CYCLES
     Route: 065
     Dates: start: 20160422, end: 20161102
  3. CLEXANE [Suspect]
     Active Substance: ENOXAPARIN SODIUM
     Indication: PRODUCT USED FOR UNKNOWN INDICATION
     Dosage: ONCE
     Route: 058
     Dates: start: 20161122, end: 20161122
  4. 5-FLUOROURACIL [Suspect]
     Active Substance: FLUOROURACIL
     Dosage: 2400 MG/M2/46H
     Route: 041
     Dates: start: 20160422, end: 20161102
  5. IRINOTECAN [Concomitant]
     Active Substance: IRINOTECAN
     Indication: COLON CANCER
     Dosage: IN TOTAL 11 CYCLES
     Route: 065
     Dates: start: 20160422, end: 20161102
  6. CALCIUM FOLINATE [Concomitant]
     Active Substance: LEUCOVORIN CALCIUM
     Indication: COLON CANCER
     Dosage: IN TOTAL 11 CYCLES
     Route: 065
     Dates: start: 20160422, end: 20161102

REACTIONS (3)
  - Cardiotoxicity [Recovered/Resolved]
  - Loss of consciousness [Unknown]
  - Cardiac arrest [Recovered/Resolved]

NARRATIVE: CASE EVENT DATE: 20160802
